FAERS Safety Report 18157167 (Version 1)
Quarter: 2020Q3

REPORT INFORMATION
  Report Type: Spontaneous
  Country: IT (occurrence: IT)
  Receive Date: 20200817
  Receipt Date: 20200817
  Transmission Date: 20201103
  Serious: Yes (Hospitalization, Other)
  Sender: FDA-Public Use
  Company Number: IT-HIKMA PHARMACEUTICALS USA INC.-IT-H14001-20-51903

PATIENT
  Age: 41 Year
  Sex: Female

DRUGS (4)
  1. CYTARABINE. [Suspect]
     Active Substance: CYTARABINE
     Indication: TRIPLE NEGATIVE BREAST CANCER
     Dosage: UNKNOWN
     Route: 065
     Dates: start: 20200101, end: 20200626
  2. VENETOCLAX. [Suspect]
     Active Substance: VENETOCLAX
     Indication: ACUTE MYELOID LEUKAEMIA
     Dosage: UNKNOWN
     Route: 065
     Dates: start: 20200101, end: 20200626
  3. AZACITIDINE. [Suspect]
     Active Substance: AZACITIDINE
     Indication: ACUTE MYELOID LEUKAEMIA
     Dosage: UNKNOWN
     Route: 065
     Dates: start: 20200101, end: 20200626
  4. DAUNORUBICIN [Suspect]
     Active Substance: DAUNORUBICIN
     Indication: TRIPLE NEGATIVE BREAST CANCER
     Dosage: UNKNOWN
     Route: 065
     Dates: start: 20200101, end: 20200626

REACTIONS (2)
  - Febrile neutropenia [Unknown]
  - Pancytopenia [Unknown]

NARRATIVE: CASE EVENT DATE: 20200626
